FAERS Safety Report 5012982-8 (Version None)
Quarter: 2006Q2

REPORT INFORMATION
  Report Type: 
  Country: None (occurrence: None)
  Receive Date: 20060505
  Receipt Date: 20060517
  Transmission Date: 20061013
  Serious: Yes (Hospitalization)
  Sender: FDA-Public Use
  Company Number: 2006065057

PATIENT
  Age: 82 Year
  Sex: Male
  Weight: 64 kg

DRUGS (5)
  1. SERTRALINE [Suspect]
     Indication: DEPRESSION
     Dosage: 50 MG (50 MG, 1 IN 1 D) ORAL
     Route: 048
     Dates: start: 20051118, end: 20051122
  2. ASPIRIN [Suspect]
     Indication: ARRHYTHMIA
     Dosage: 300 MG (300 MG, 1 IN 1 D) ORAL
     Route: 048
     Dates: start: 19941001, end: 20051122
  3. IRBESARTAN [Concomitant]
  4. AMILORIDE [Concomitant]
  5. TAMSULOSIN HCL [Concomitant]

REACTIONS (5)
  - ARRHYTHMIA [None]
  - DEPRESSION [None]
  - DRUG INTERACTION [None]
  - GASTROINTESTINAL HAEMORRHAGE [None]
  - GASTROINTESTINAL ULCER [None]
